FAERS Safety Report 15690740 (Version 1)
Quarter: 2018Q4

REPORT INFORMATION
  Report Type: Spontaneous
  Country: US (occurrence: US)
  Receive Date: 20181205
  Receipt Date: 20181205
  Transmission Date: 20190205
  Serious: No
  Sender: FDA-Public Use
  Company Number: US-PFIZER INC-2018500034

PATIENT
  Age: 53 Year
  Sex: Male

DRUGS (1)
  1. GENOTROPIN MQ [Suspect]
     Active Substance: SOMATROPIN
     Dosage: 0.2 MG, DAILY

REACTIONS (10)
  - Blood creatinine increased [Unknown]
  - Blood testosterone decreased [Unknown]
  - Dizziness [Unknown]
  - Blood sodium increased [Unknown]
  - Human epidermal growth factor receptor decreased [Unknown]
  - Alanine aminotransferase increased [Unknown]
  - Blood triglycerides increased [Unknown]
  - High density lipoprotein decreased [Unknown]
  - Very low density lipoprotein increased [Unknown]
  - Blood urea nitrogen/creatinine ratio decreased [Unknown]

NARRATIVE: CASE EVENT DATE: 20180409
